FAERS Safety Report 9825209 (Version 1)
Quarter: 2013Q4

REPORT INFORMATION
  Report Type: Spontaneous
  Country: US (occurrence: None)
  Receive Date: 20131028
  Receipt Date: 20131028
  Transmission Date: 20140711
  Serious: Yes (Other)
  Sender: FDA-Public Use
  Company Number: 2013US001081

PATIENT
  Age: 56 Year
  Sex: Male
  Weight: 113.4 kg

DRUGS (4)
  1. ICLUSIG [Suspect]
     Route: 048
     Dates: start: 20130117
  2. HYDREA (HYDROXYCARBAMIDE) [Concomitant]
  3. METFORMIN (METFORMIN HYDRHCLORIDE) [Concomitant]
  4. COMBIVENT (IPRATROPIUM BROMIDE, SALBUTAMOL SULFATE) [Concomitant]

REACTIONS (1)
  - White blood cell count decreased [None]
